FAERS Safety Report 9230440 (Version 1)
Quarter: 2013Q2

REPORT INFORMATION
  Report Type: Spontaneous
  Country: FR (occurrence: FR)
  Receive Date: 20130415
  Receipt Date: 20130415
  Transmission Date: 20140414
  Serious: Yes (Hospitalization)
  Sender: FDA-Public Use
  Company Number: FR-PFIZER INC-2013117227

PATIENT
  Age: 92 Year
  Sex: Female

DRUGS (2)
  1. EUPANTOL [Suspect]
     Dosage: 40 MG, 1X/DAY
     Route: 048
     Dates: start: 20121124, end: 20130130
  2. MABTHERA [Suspect]
     Indication: ACQUIRED HAEMOPHILIA
     Dosage: UNK
     Route: 042
     Dates: start: 20121214, end: 20121218

REACTIONS (1)
  - Neutropenia [Recovered/Resolved]
